FAERS Safety Report 20804577 (Version 1)
Quarter: 2022Q2

REPORT INFORMATION
  Report Type: Spontaneous
  Country: FR (occurrence: FR)
  Receive Date: 20220509
  Receipt Date: 20220509
  Transmission Date: 20220721
  Serious: Yes (Other)
  Sender: FDA-Public Use
  Company Number: FR-009507513-2204FRA006713

PATIENT
  Age: 58 Year
  Sex: Male

DRUGS (3)
  1. PEMETREXED [Suspect]
     Active Substance: PEMETREXED
     Indication: Non-small cell lung cancer
     Dosage: UNK, UNKNOWN
     Route: 065
     Dates: start: 20220303
  2. PEMBROLIZUMAB [Suspect]
     Active Substance: PEMBROLIZUMAB
     Indication: Non-small cell lung cancer
     Dosage: UNK, UNKNOWN
     Route: 065
     Dates: start: 20220303
  3. CARBOPLATIN [Suspect]
     Active Substance: CARBOPLATIN
     Indication: Non-small cell lung cancer
     Dosage: UNK, UNKNOWN
     Route: 065
     Dates: start: 20220303

REACTIONS (5)
  - Toxicity to various agents [Unknown]
  - Hypoaesthesia [Unknown]
  - Cardiac tamponade [Unknown]
  - Palmoplantar keratoderma [Unknown]
  - Skin exfoliation [Unknown]

NARRATIVE: CASE EVENT DATE: 20220303
